FAERS Safety Report 19771837 (Version 1)
Quarter: 2021Q3

REPORT INFORMATION
  Report Type: Spontaneous
  Country: US (occurrence: US)
  Receive Date: 20210830
  Receipt Date: 20210830
  Transmission Date: 20211014
  Serious: Yes (Hospitalization)
  Sender: FDA-Public Use
  Company Number: None

PATIENT
  Sex: Female

DRUGS (15)
  1. CARAFATE [Concomitant]
     Active Substance: SUCRALFATE
  2. LOSARTAN. [Concomitant]
     Active Substance: LOSARTAN
  3. METOPROLOL ER [Concomitant]
     Active Substance: METOPROLOL SUCCINATE
  4. POTASSIUM CHLORIDE ER [Concomitant]
     Active Substance: POTASSIUM CHLORIDE
  5. CALCIUM [Concomitant]
     Active Substance: CALCIUM
  6. SLOW IRON [Concomitant]
  7. VYTROIN [Concomitant]
  8. CAPECITABINE 500MG TABLETS [Suspect]
     Active Substance: CAPECITABINE
     Indication: RECTAL CANCER
     Dosage: OTHER FREQUENCY:BID X 14D, 7 OFF;?
     Route: 048
     Dates: start: 20210403
  9. OXALIPLATIN. [Suspect]
     Active Substance: OXALIPLATIN
  10. CALAMZIME SKIN PROTECTANT [Concomitant]
  11. IBUPROFEN. [Concomitant]
     Active Substance: IBUPROFEN
  12. PROTONIX [Concomitant]
     Active Substance: PANTOPRAZOLE SODIUM
  13. CHLORTHALIDONE. [Concomitant]
     Active Substance: CHLORTHALIDONE
  14. DOXEPIN [Concomitant]
     Active Substance: DOXEPIN
  15. TRAMADOL. [Concomitant]
     Active Substance: TRAMADOL

REACTIONS (2)
  - Therapy cessation [None]
  - Drug hypersensitivity [None]
